FAERS Safety Report 6922978-4 (Version None)
Quarter: 2010Q3

REPORT INFORMATION
  Report Type: 
  Country: None (occurrence: None)
  Receive Date: 20100813
  Receipt Date: 20100803
  Transmission Date: 20110219
  Serious: Yes (Other)
  Sender: FDA-Public Use
  Company Number: US-PFIZER INC-2010087441

PATIENT
  Sex: Female
  Weight: 55.3 kg

DRUGS (10)
  1. SUTENT [Suspect]
     Indication: LUNG NEOPLASM
     Dosage: 50 MG, 1X/DAY
     Route: 048
     Dates: start: 20100623, end: 20100703
  2. ALEVE (CAPLET) [Concomitant]
     Indication: MYALGIA
     Dosage: 200 MG, UNK
     Route: 048
     Dates: start: 20100611
  3. CLONIDINE [Concomitant]
     Indication: HYPERTENSION
     Dosage: 0.2 MG, 1X/DAY
     Route: 048
  4. METOPROLOL [Concomitant]
     Indication: HYPERTENSION
     Dosage: 100 MG, 1X/DAY
     Route: 048
  5. LOSARTAN [Concomitant]
     Indication: HYPERTENSION
     Dosage: 75 MG, 1X/DAY
     Route: 048
  6. AMLODIPINE [Concomitant]
     Indication: HYPERTENSION
     Dosage: 10 MG, 1X/DAY
     Route: 048
  7. HYDROCHLOROTHIAZIDE [Concomitant]
     Indication: HYPERTENSION
     Dosage: 25 MG, 1X/DAY
     Route: 048
  8. ACETYLSALICYLIC ACID [Concomitant]
     Indication: PROPHYLAXIS
     Dosage: 81 MG, ALTERNATE DAY
     Route: 048
  9. CALCIUM WITH VITAMIN D [Concomitant]
     Dosage: 600 MG, 2X/DAY
     Route: 048
  10. CENTRUM SILVER [Concomitant]
     Dosage: UNK
     Route: 048

REACTIONS (2)
  - DEEP VEIN THROMBOSIS [None]
  - MYALGIA [None]
